FAERS Safety Report 6397672-1 (Version None)
Quarter: 2009Q4

REPORT INFORMATION
  Report Type: 
  Country: None (occurrence: None)
  Receive Date: 20091012
  Receipt Date: 20090930
  Transmission Date: 20100525
  Serious: Yes (Other)
  Sender: FDA-Public Use
  Company Number: US-PFIZER INC-2008035705

PATIENT
  Sex: Female
  Weight: 64 kg

DRUGS (8)
  1. CHANTIX [Suspect]
     Indication: SMOKING CESSATION THERAPY
     Dosage: 0.5 MG, 1X/DAY
     Dates: start: 20070101, end: 20070101
  2. CRESTOR [Concomitant]
  3. ZETIA [Concomitant]
  4. TRICOR [Concomitant]
  5. METOPROLOL [Concomitant]
  6. METFORMIN HYDROCHLORIDE [Concomitant]
     Indication: DIABETES MELLITUS
  7. ACETYLSALICYLIC ACID [Concomitant]
  8. XANAX [Concomitant]

REACTIONS (12)
  - ABNORMAL DREAMS [None]
  - BLOOD GLUCOSE INCREASED [None]
  - CARDIAC OPERATION [None]
  - CHEST PAIN [None]
  - CRYING [None]
  - INJURY [None]
  - INSOMNIA [None]
  - MIDDLE INSOMNIA [None]
  - MYOCARDIAL INFARCTION [None]
  - PAIN [None]
  - SOMNOLENCE [None]
  - STRESS [None]
